FAERS Safety Report 17112051 (Version 1)
Quarter: 2019Q4

REPORT INFORMATION
  Report Type: Report from Study
  Country: AU (occurrence: AU)
  Receive Date: 20191204
  Receipt Date: 20191204
  Transmission Date: 20200122
  Serious: Yes (Hospitalization, Other)
  Sender: FDA-Public Use
  Company Number: AU-PAREXEL INTERNATIONAL-2016AU000936

PATIENT

DRUGS (6)
  1. BGB-3111 [Suspect]
     Active Substance: ZANUBRUTINIB
     Dosage: 80 MG, DAILY
     Route: 048
     Dates: start: 20160222
  2. AMLODIPINE [Concomitant]
     Active Substance: AMLODIPINE BESYLATE
     Indication: HYPERTENSION
     Dosage: 5 MG, DAILY
     Route: 048
     Dates: start: 2014
  3. CRESTOR [Concomitant]
     Active Substance: ROSUVASTATIN CALCIUM
     Indication: HYPERLIPIDAEMIA
     Dosage: 10 MG, DAILY
     Route: 048
     Dates: start: 2011
  4. ALLOPURINOL. [Concomitant]
     Active Substance: ALLOPURINOL
     Indication: TUMOUR LYSIS SYNDROME
     Dosage: 300 MG, DAILY
     Dates: start: 20151127
  5. BGB-3111 [Suspect]
     Active Substance: ZANUBRUTINIB
     Indication: B-CELL LYMPHOMA
     Dosage: 160 MG, BID
     Route: 048
     Dates: start: 20151130, end: 20160130
  6. CIALIS [Concomitant]
     Active Substance: TADALAFIL
     Indication: SUPPLEMENTATION THERAPY
     Dosage: 5 MG, PRN
     Route: 048
     Dates: start: 20151214

REACTIONS (1)
  - Cardiac failure [Recovered/Resolved]

NARRATIVE: CASE EVENT DATE: 20160130
